FAERS Safety Report 20890101 (Version 2)
Quarter: 2022Q2

REPORT INFORMATION
  Report Type: Spontaneous
  Country: ES (occurrence: None)
  Receive Date: 20220530
  Receipt Date: 20220608
  Transmission Date: 20220721
  Serious: Yes (Other)
  Sender: FDA-Public Use
  Company Number: ES-ROCHE-3100224

PATIENT
  Age: 43 Year
  Sex: Male

DRUGS (1)
  1. OCRELIZUMAB [Suspect]
     Active Substance: OCRELIZUMAB
     Indication: Relapsing-remitting multiple sclerosis
     Dosage: THEN 600 MG EVERY 6 MONTHS,?LAST DOSE ON /JAN/2020, /JUL/2020, /JAN/2021, /JUL/2021
     Route: 042
     Dates: start: 20190617

REACTIONS (3)
  - Septal panniculitis [Recovered/Resolved]
  - Panniculitis lobular [Recovered/Resolved]
  - Systemic inflammatory response syndrome [Recovering/Resolving]

NARRATIVE: CASE EVENT DATE: 20211110
